FAERS Safety Report 9886247 (Version 3)
Quarter: 2014Q1

REPORT INFORMATION
  Report Type: Spontaneous
  Country: CA (occurrence: CA)
  Receive Date: 20140210
  Receipt Date: 20140321
  Transmission Date: 20141002
  Serious: Yes (Death, Hospitalization)
  Sender: FDA-Public Use
  Company Number: US-ASTRAZENECA-2014SE08857

PATIENT
  Age: 1 Month
  Sex: Male
  Weight: 4 kg

DRUGS (3)
  1. SYNAGIS [Suspect]
     Dosage: 1ST DOSE 27 MG
     Route: 030
     Dates: start: 20131209, end: 20131209
  2. SYNAGIS [Suspect]
     Dosage: 2ND DOSE 37 MG
     Route: 030
     Dates: start: 20131228, end: 20131228
  3. SYNAGIS [Suspect]
     Dosage: 3RD DOSE 60 MG
     Route: 030
     Dates: start: 20140127, end: 20140127

REACTIONS (5)
  - Cardiac arrest [Fatal]
  - Hypotonia [Fatal]
  - Mouth haemorrhage [Fatal]
  - Choking [Unknown]
  - Atrial septal defect [Unknown]
